FAERS Safety Report 8395678 (Version 3)
Quarter: 2012Q4

REPORT INFORMATION
  Report Type: Report from Study
  Country: CA (occurrence: CA)
  Receive Date: 20120208
  Receipt Date: 20121011
  Transmission Date: 20130627
  Serious: Yes (Death, Hospitalization)
  Sender: FDA-Public Use
  Company Number: CA-ROCHE-1034397

PATIENT
  Age: 75 Year
  Sex: Female
  Weight: 81.27 kg

DRUGS (15)
  1. ROACTEMRA [Suspect]
     Indication: RHEUMATOID ARTHRITIS
     Route: 042
     Dates: start: 20110204, end: 20120706
  2. METHOTREXATE [Concomitant]
  3. PREDNISONE [Concomitant]
     Dosage: dose unknown
     Route: 065
  4. PREDNISONE [Concomitant]
     Dosage: dose increased
     Route: 065
  5. METOPROLOL [Concomitant]
  6. PARIET [Concomitant]
  7. LISINOPRIL [Concomitant]
  8. HYDROXYCHLOROQUINE [Concomitant]
  9. HYDROCHLOROTHIAZIDE [Concomitant]
  10. FOLIC ACID [Concomitant]
  11. CELEBREX [Concomitant]
  12. VITAMIN D [Concomitant]
  13. CALCIUM [Concomitant]
  14. MULTIVITAMIN [Concomitant]
  15. COUMADIN [Concomitant]
     Indication: ATRIAL FIBRILLATION

REACTIONS (2)
  - Brain stem haemorrhage [Fatal]
  - Rheumatoid arthritis [Not Recovered/Not Resolved]
